FAERS Safety Report 7932151-9 (Version None)
Quarter: 2011Q4

REPORT INFORMATION
  Report Type: 
  Country: None (occurrence: None)
  Receive Date: 20111121
  Receipt Date: 20111110
  Transmission Date: 20120403
  Serious: Yes (Hospitalization)
  Sender: FDA-Public Use
  Company Number: JP-ASTRAZENECA-2011SE69654

PATIENT
  Sex: Male

DRUGS (6)
  1. GASMOTIN [Concomitant]
  2. SEROQUEL [Suspect]
     Route: 048
  3. RISPERDAL [Concomitant]
  4. CELECOXIB [Concomitant]
  5. SEROQUEL [Suspect]
     Indication: SCHIZOPHRENIA
     Route: 048
  6. VALPROATE SODIUM [Concomitant]

REACTIONS (1)
  - SUBILEUS [None]
